FAERS Safety Report 24813108 (Version 2)
Quarter: 2025Q3

REPORT INFORMATION
  Report Type: Report from Study
  Country: US (occurrence: US)
  Receive Date: 20250107
  Receipt Date: 20250803
  Transmission Date: 20251020
  Serious: Yes (Hospitalization)
  Sender: ALEXION PHARMACEUTICALS
  Company Number: US-Astrazeneca-2024A209083

PATIENT
  Sex: Female

DRUGS (1)
  1. BENRALIZUMAB [Suspect]
     Active Substance: BENRALIZUMAB
     Indication: Asthma
     Dosage: STRENGTH 30 MILLIGRAM PER MILLILITRE, 30 MILLIGRAM, Q8W
     Dates: start: 20240904

REACTIONS (4)
  - Nausea [Unknown]
  - Dyspnoea [Unknown]
  - Oxygen saturation abnormal [Unknown]
  - Loss of personal independence in daily activities [Unknown]
